FAERS Safety Report 11391025 (Version 1)
Quarter: 2015Q3

REPORT INFORMATION
  Report Type: Spontaneous
  Country: US (occurrence: None)
  Receive Date: 20150814
  Receipt Date: 20150814
  Transmission Date: 20151125
  Serious: Yes (Other)
  Sender: FDA-Public Use
  Company Number: None

PATIENT
  Age: 67 Year
  Sex: Male
  Weight: 120.6 kg

DRUGS (1)
  1. VANCOMYCIN [Suspect]
     Active Substance: VANCOMYCIN
     Indication: CELLULITIS
     Dosage: 750-1000 MG
     Route: 042
     Dates: start: 20150726, end: 20150801

REACTIONS (3)
  - White blood cell count decreased [None]
  - Neutropenia [None]
  - Leukopenia [None]

NARRATIVE: CASE EVENT DATE: 20150729
